FAERS Safety Report 5990683-7 (Version None)
Quarter: 2008Q4

REPORT INFORMATION
  Report Type: 
  Country: None (occurrence: None)
  Receive Date: 20081211
  Receipt Date: 20081202
  Transmission Date: 20090506
  Serious: Yes (Other)
  Sender: FDA-Public Use
  Company Number: PHEH2008US09909

PATIENT
  Sex: Male
  Weight: 89.456 kg

DRUGS (6)
  1. TEGRETOL-XR [Suspect]
     Indication: OLIGODENDROGLIOMA
     Dosage: 200 MG, TID
     Route: 048
     Dates: start: 20080917, end: 20081110
  2. TOPAMAX [Concomitant]
     Indication: OLIGODENDROGLIOMA
     Dosage: 25 MG, BID
     Route: 048
     Dates: start: 20060629
  3. NEURONTIN [Concomitant]
     Indication: HEADACHE
     Dosage: 300 MG, TID
     Route: 048
     Dates: start: 20060216
  4. NEURONTIN [Concomitant]
     Indication: OLIGODENDROGLIOMA
  5. DIAZEPAM [Concomitant]
  6. PRILOSEC [Concomitant]

REACTIONS (1)
  - PSYCHOMOTOR SEIZURES [None]
